FAERS Safety Report 5989768-0 (Version None)
Quarter: 2008Q4

REPORT INFORMATION
  Report Type: 
  Country: None (occurrence: None)
  Receive Date: 20081209
  Receipt Date: 20081124
  Transmission Date: 20090506
  Serious: Yes (Other)
  Sender: FDA-Public Use
  Company Number: 2008S1021086

PATIENT
  Age: 63 Year
  Sex: Female

DRUGS (5)
  1. CIMETIDINE [Suspect]
     Indication: CYSTITIS INTERSTITIAL
     Dosage: 400 MG; DAILY; ORAL
     Route: 048
     Dates: start: 20080927, end: 20081021
  2. CALCIUM [Concomitant]
  3. COD LIVER OIL [Concomitant]
  4. SILICA [Concomitant]
  5. VITAMIN D [Concomitant]

REACTIONS (3)
  - ALOPECIA [None]
  - COUGH [None]
  - MYALGIA [None]
